FAERS Safety Report 4375495-2 (Version None)
Quarter: 2004Q2

REPORT INFORMATION
  Report Type: 
  Country: None (occurrence: None)
  Receive Date: 20040607
  Receipt Date: 20040526
  Transmission Date: 20050107
  Serious: Yes (Hospitalization)
  Sender: FDA-Public Use
  Company Number: 2004035342

PATIENT
  Sex: 0

DRUGS (1)
  1. LIPITOR [Suspect]
     Indication: ILL-DEFINED DISORDER
     Dosage: SEVERAL MONTHS

REACTIONS (4)
  - INJURY [None]
  - MUSCLE DISORDER [None]
  - MYOPATHY [None]
  - RENAL FAILURE [None]
